FAERS Safety Report 5117692-4 (Version None)
Quarter: 2006Q3

REPORT INFORMATION
  Report Type: 
  Country: None (occurrence: None)
  Receive Date: 20060928
  Receipt Date: 20060928
  Transmission Date: 20061208
  Serious: Yes (Life-Threatening, Hospitalization)
  Sender: FDA-Public Use
  Company Number: None

PATIENT
  Sex: Male
  Weight: 104.3273 kg

DRUGS (3)
  1. CLOZAPINE [Suspect]
     Indication: SCHIZOPHRENIA, DISORGANISED TYPE
     Dosage: 400MG  Q AM PO   500MG  Q PM  PO
     Route: 048
     Dates: start: 19960101, end: 20060809
  2. DEPAKOTE ER [Concomitant]
  3. SEROQUEL [Concomitant]

REACTIONS (9)
  - ASTHENIA [None]
  - ATELECTASIS [None]
  - CARDIOMEGALY [None]
  - ELECTROCARDIOGRAM T WAVE ABNORMAL [None]
  - LETHARGY [None]
  - OXYGEN SATURATION DECREASED [None]
  - PERICARDIAL EFFUSION [None]
  - PLEURAL EFFUSION [None]
  - RESPIRATORY RATE INCREASED [None]
